FAERS Safety Report 6173083-9 (Version None)
Quarter: 2009Q2

REPORT INFORMATION
  Report Type: 
  Country: None (occurrence: None)
  Receive Date: 20090430
  Receipt Date: 20090427
  Transmission Date: 20091009
  Serious: Yes (Other)
  Sender: FDA-Public Use
  Company Number: US-JNJFOC-20090406686

PATIENT
  Age: 34 Year
  Sex: Female
  Weight: 90.72 kg

DRUGS (4)
  1. TOPAMAX [Suspect]
     Indication: MIGRAINE PROPHYLAXIS
     Route: 048
  2. PROPRANOLOL [Concomitant]
     Indication: MIGRAINE
     Route: 048
  3. AMITRIPTLINE HYDROCHLORIDE TAB [Concomitant]
     Indication: MIGRAINE
     Route: 048
  4. TRI-SPRINTEC [Concomitant]
     Indication: CONTRACEPTION
     Route: 048

REACTIONS (2)
  - COGNITIVE DISORDER [None]
  - PARAESTHESIA [None]
